FAERS Safety Report 9332147 (Version 6)
Quarter: 2014Q2

REPORT INFORMATION
  Report Type: Report from Study
  Country: CA (occurrence: CA)
  Receive Date: 20130606
  Receipt Date: 20140522
  Transmission Date: 20141212
  Serious: Yes (Hospitalization)
  Sender: FDA-Public Use
  Company Number: CA-ROCHE-1233014

PATIENT
  Age: 55 Year
  Sex: Female
  Weight: 80 kg

DRUGS (12)
  1. ACTEMRA [Suspect]
     Indication: RHEUMATOID ARTHRITIS
     Route: 042
     Dates: start: 20130227
  2. ACTEMRA [Suspect]
     Route: 042
     Dates: start: 20130724
  3. ACTEMRA [Suspect]
     Route: 042
     Dates: start: 20130823
  4. ACTEMRA [Suspect]
     Route: 042
     Dates: start: 20130920
  5. ACTEMRA [Suspect]
     Route: 042
     Dates: start: 20131120
  6. PANTOPRAZOLE [Concomitant]
  7. GABAPENTIN [Concomitant]
  8. TRIAZIDE [Concomitant]
  9. ACETAMINOPHEN [Concomitant]
  10. ADVAIR [Concomitant]
  11. SPIRIVA [Concomitant]
  12. SALBUTAMOL [Concomitant]

REACTIONS (12)
  - Pericarditis [Unknown]
  - Lung infection [Recovered/Resolved]
  - Headache [Recovered/Resolved]
  - Ear pain [Recovered/Resolved]
  - Pain in jaw [Recovered/Resolved]
  - Chest pain [Recovered/Resolved]
  - Drug ineffective [Unknown]
  - Hepatic enzyme increased [Unknown]
  - Musculoskeletal stiffness [Recovered/Resolved]
  - Pain in extremity [Not Recovered/Not Resolved]
  - Nasopharyngitis [Unknown]
  - Arthralgia [Unknown]
